FAERS Safety Report 12310455 (Version 1)
Quarter: 2016Q2

REPORT INFORMATION
  Report Type: Spontaneous
  Country: GR (occurrence: GR)
  Receive Date: 20160427
  Receipt Date: 20160427
  Transmission Date: 20160815
  Serious: Yes (Other)
  Sender: FDA-Public Use
  Company Number: GR-SA-2016SA078669

PATIENT
  Age: 82 Year
  Sex: Male

DRUGS (4)
  1. SALOSPIR [Concomitant]
     Active Substance: ASPIRIN
     Route: 048
  2. MULTAQ [Suspect]
     Active Substance: DRONEDARONE
     Route: 048
     Dates: start: 2010
  3. OLARTAN [Concomitant]
     Route: 048
  4. LIPITOR [Concomitant]
     Active Substance: ATORVASTATIN CALCIUM
     Route: 048

REACTIONS (4)
  - Fuchs^ syndrome [Unknown]
  - Eye irritation [Unknown]
  - Cataract [Unknown]
  - Blepharitis [Unknown]

NARRATIVE: CASE EVENT DATE: 2013
